FAERS Safety Report 4559445-1 (Version None)
Quarter: 2005Q1

REPORT INFORMATION
  Report Type: 
  Country: None (occurrence: None)
  Receive Date: 20050119
  Receipt Date: 20050106
  Transmission Date: 20050727
  Serious: Yes (Disabling)
  Sender: FDA-Public Use
  Company Number: 2005CG00058

PATIENT
  Age: 46 Year
  Sex: Female

DRUGS (4)
  1. ZOMIG [Suspect]
     Indication: MIGRAINE
     Dates: end: 20041004
  2. ATENOLOL [Concomitant]
  3. ZANIDIP [Concomitant]
  4. OGYLINE [Concomitant]

REACTIONS (2)
  - RETINAL VEIN THROMBOSIS [None]
  - THERAPY NON-RESPONDER [None]
